FAERS Safety Report 5059663-2 (Version None)
Quarter: 2006Q3

REPORT INFORMATION
  Report Type: 
  Country: None (occurrence: None)
  Receive Date: 20060724
  Receipt Date: 20060505
  Transmission Date: 20061208
  Serious: Yes (Hospitalization)
  Sender: FDA-Public Use
  Company Number: US-ROCHE-447154

PATIENT
  Age: 78 Year
  Sex: Female

DRUGS (9)
  1. BONIVA [Suspect]
     Indication: DRUG USE FOR UNKNOWN INDICATION
     Route: 048
     Dates: end: 20060315
  2. LOPRESSOR [Concomitant]
     Indication: HYPERTENSION
     Route: 048
  3. FOLIC ACID [Concomitant]
     Route: 048
  4. LOVASTATIN [Concomitant]
     Dosage: FREQUENCY REPORTED AS HS
     Route: 048
  5. ANTIVERT [Concomitant]
     Dosage: DOSING INFO REPORTD AS 12.5 TID PRN
  6. CARDIZEM [Concomitant]
  7. LOVENOX [Concomitant]
  8. COUMADIN [Concomitant]
  9. AMIODARONE HCL [Concomitant]

REACTIONS (17)
  - ANOREXIA [None]
  - ANXIETY [None]
  - ASTHENIA [None]
  - ATRIAL FIBRILLATION [None]
  - BACK PAIN [None]
  - CARDIAC DISORDER [None]
  - CLOSTRIDIAL INFECTION [None]
  - DILATATION ATRIAL [None]
  - HYPONATRAEMIA [None]
  - INAPPROPRIATE ANTIDIURETIC HORMONE SECRETION [None]
  - LOBAR PNEUMONIA [None]
  - MUSCULOSKELETAL STIFFNESS [None]
  - PAIN [None]
  - PALPITATIONS [None]
  - PNEUMONIA [None]
  - SKIN WRINKLING [None]
  - VOMITING [None]
